FAERS Safety Report 6244211-1 (Version None)
Quarter: 2009Q2

REPORT INFORMATION
  Report Type: 
  Country: None (occurrence: None)
  Receive Date: 20090625
  Receipt Date: 20090617
  Transmission Date: 20091009
  Serious: Yes (Death, Other)
  Sender: FDA-Public Use
  Company Number: US-BIOGENIDEC-2009BI011468

PATIENT
  Age: 34 Year
  Sex: Female

DRUGS (1)
  1. TYSABRI [Suspect]
     Indication: MULTIPLE SCLEROSIS
     Route: 042
     Dates: start: 20081219, end: 20081201

REACTIONS (6)
  - ASPHYXIA [None]
  - DROWNING [None]
  - GASTROINTESTINAL DISORDER [None]
  - INTESTINAL PERFORATION [None]
  - OVERDOSE [None]
  - SEPSIS [None]
